FAERS Safety Report 7717009-2 (Version None)
Quarter: 2011Q3

REPORT INFORMATION
  Report Type: 
  Country: None (occurrence: None)
  Receive Date: 20110829
  Receipt Date: 20110815
  Transmission Date: 20111222
  Serious: Yes (Death)
  Sender: FDA-Public Use
  Company Number: GB-GENENTECH-323170

PATIENT
  Sex: Male

DRUGS (1)
  1. LUCENTIS [Suspect]
     Indication: PRODUCT USED FOR UNKNOWN INDICATION
     Route: 031

REACTIONS (5)
  - MYOCARDIAL ISCHAEMIA [None]
  - GASTRIC CANCER [None]
  - CHEST PAIN [None]
  - HYPOXIA [None]
  - IDIOPATHIC PULMONARY FIBROSIS [None]
